FAERS Safety Report 4746881-3 (Version None)
Quarter: 2005Q3

REPORT INFORMATION
  Report Type: 
  Country: None (occurrence: None)
  Receive Date: 20050817
  Receipt Date: 20050810
  Transmission Date: 20060218
  Serious: Yes (Death)
  Sender: FDA-Public Use
  Company Number: US-MERCK-0508USA02018

PATIENT
  Age: 48 Year
  Sex: Male

DRUGS (1)
  1. PRIMAXIN [Suspect]
     Indication: PNEUMONIA
     Route: 042
     Dates: start: 20050101, end: 20050101

REACTIONS (5)
  - ANGIONEUROTIC OEDEMA [None]
  - CONVULSION [None]
  - LOSS OF CONSCIOUSNESS [None]
  - SEPSIS [None]
  - THERAPY NON-RESPONDER [None]
